FAERS Safety Report 8029929-2 (Version None)
Quarter: 2012Q1

REPORT INFORMATION
  Report Type: 
  Country: None (occurrence: None)
  Receive Date: 20120105
  Receipt Date: 20111222
  Transmission Date: 20120608
  Serious: Yes (Other)
  Sender: FDA-Public Use
  Company Number: TPA2011A08706

PATIENT
  Age: 91 Year
  Sex: Male

DRUGS (2)
  1. AMARYL [Concomitant]
  2. ACTOS [Suspect]
     Indication: TYPE 2 DIABETES MELLITUS
     Dosage: PER ORAL
     Route: 048
     Dates: start: 20060101, end: 20110101

REACTIONS (1)
  - BLADDER CANCER [None]
